FAERS Safety Report 5565514-X (Version None)
Quarter: 2007Q4

REPORT INFORMATION
  Report Type: 
  Country: None (occurrence: None)
  Receive Date: 20071218
  Receipt Date: 20071214
  Transmission Date: 20080405
  Serious: Yes (Other)
  Sender: FDA-Public Use
  Company Number: US-ASTRAZENECA-2007UW25327

PATIENT
  Age: 73 Year
  Sex: Female
  Weight: 59 kg

DRUGS (4)
  1. ARIMIDEX [Suspect]
     Indication: BREAST CANCER
     Route: 048
     Dates: start: 20020601, end: 20060101
  2. FASLODEX [Suspect]
     Indication: BREAST CANCER
     Dates: start: 20060601
  3. ZOMETA [Concomitant]
     Route: 042
  4. NEXIUM [Concomitant]
     Route: 048

REACTIONS (4)
  - DISEASE PROGRESSION [None]
  - GASTROENTERITIS [None]
  - PLEURAL EFFUSION [None]
  - WEIGHT DECREASED [None]
